FAERS Safety Report 8387057 (Version 2)
Quarter: 2013Q2

REPORT INFORMATION
  Report Type: Spontaneous
  Country: US (occurrence: US)
  Receive Date: 20120202
  Receipt Date: 20130620
  Transmission Date: 20140414
  Serious: Yes (Hospitalization, Other)
  Sender: FDA-Public Use
  Company Number: US-ELI_LILLY_AND_COMPANY-US201201008159

PATIENT
  Age: 79 Year
  Sex: Female

DRUGS (16)
  1. HUMALOG LISPRO [Suspect]
     Indication: TYPE 2 DIABETES MELLITUS
     Dosage: 6 U, TID
     Route: 065
     Dates: start: 2009
  2. HUMALOG LISPRO [Suspect]
     Dosage: 6 U, TID
     Route: 065
     Dates: start: 2009
  3. LANTUS [Concomitant]
     Dosage: UNK, EACH EVENING
  4. PRILOSEC [Concomitant]
     Dosage: 20 MG, BID
  5. PHOSLO [Concomitant]
  6. CLONIDINE [Concomitant]
     Dosage: UNK, QD
  7. LIPITOR [Concomitant]
  8. COREG [Concomitant]
     Dosage: UNK, QD
  9. ASPIRIN [Concomitant]
     Dosage: UNK, QD
  10. HYZAAR [Concomitant]
     Dosage: UNK, QD
  11. PLAVIX [Concomitant]
     Dosage: UNK, QD
  12. LEVOTHYROXIN [Concomitant]
     Dosage: 75 UG, QD
  13. BISACODYL [Concomitant]
     Dosage: UNK, QD
  14. PERCOCET [Concomitant]
  15. FLEXERIL [Concomitant]
  16. FENTANYL [Concomitant]
     Dosage: UNK, OTHER

REACTIONS (7)
  - Renal impairment [Not Recovered/Not Resolved]
  - Thrombosis [Not Recovered/Not Resolved]
  - Back pain [Unknown]
  - Cardiac disorder [Unknown]
  - Cataract [Unknown]
  - Memory impairment [Not Recovered/Not Resolved]
  - Polyp [Unknown]
